FAERS Safety Report 7213818-7 (Version None)
Quarter: 2011Q1

REPORT INFORMATION
  Report Type: 
  Country: None (occurrence: None)
  Receive Date: 20110106
  Receipt Date: 20100929
  Transmission Date: 20110831
  Serious: Yes (Other)
  Sender: FDA-Public Use
  Company Number: PHHY2010JP67177

PATIENT
  Sex: Female

DRUGS (7)
  1. PURSENNID [Concomitant]
     Dosage: 24 MG
     Route: 048
     Dates: start: 20100816
  2. SUTENT [Concomitant]
     Indication: METASTATIC RENAL CELL CARCINOMA
     Dosage: 50 MG
     Route: 048
     Dates: start: 20100112, end: 20100319
  3. AFINITOR [Suspect]
     Indication: METASTATIC RENAL CELL CARCINOMA
     Dosage: 10 MG
     Route: 048
     Dates: start: 20100803, end: 20100922
  4. KETOPROFEN [Concomitant]
     Dosage: 20 MG
     Dates: start: 20100808
  5. MYSLEE [Concomitant]
     Dosage: 5 MG
     Route: 048
     Dates: start: 20100802
  6. SUTENT [Concomitant]
     Dosage: 37.5 MG
     Route: 048
     Dates: start: 20001110, end: 20100319
  7. AXITINIB [Concomitant]
     Indication: METASTATIC RENAL CELL CARCINOMA
     Dosage: 10 MG
     Route: 048
     Dates: start: 20100427, end: 20100720

REACTIONS (3)
  - EOSINOPHIL COUNT INCREASED [None]
  - NEOPLASM MALIGNANT [None]
  - C-REACTIVE PROTEIN INCREASED [None]
